FAERS Safety Report 16470490 (Version 2)
Quarter: 2019Q3

REPORT INFORMATION
  Report Type: Spontaneous
  Country: JP (occurrence: JP)
  Receive Date: 20190624
  Receipt Date: 20190701
  Transmission Date: 20191004
  Serious: Yes (Life-Threatening)
  Sender: FDA-Public Use
  Company Number: PHHY2019JP142664

PATIENT
  Age: 83 Year
  Sex: Male

DRUGS (1)
  1. PREDNISOLONE. [Suspect]
     Active Substance: PREDNISOLONE
     Indication: LARYNGEAL OEDEMA
     Dosage: ADMINISTERED FOR 1 MONTH, WITH THE DOSE STARTING AT 60 MG AND BEING REDUCED GRADUALLY
     Route: 065

REACTIONS (3)
  - Tuberculosis [Unknown]
  - Pleural effusion [Unknown]
  - Pyrexia [Unknown]

NARRATIVE: CASE EVENT DATE: 201705
